FAERS Safety Report 22658053 (Version 1)
Quarter: 2023Q2

REPORT INFORMATION
  Report Type: Spontaneous
  Country: US (occurrence: US)
  Receive Date: 20230630
  Receipt Date: 20230630
  Transmission Date: 20230721
  Serious: Yes (Other)
  Sender: FDA-Public Use
  Company Number: US-ORGANON-O2306USA002942

PATIENT
  Age: 24 Year
  Sex: Female

DRUGS (1)
  1. NEXPLANON [Suspect]
     Active Substance: ETONOGESTREL
     Indication: Contraception
     Dosage: 1 IMPLANT  IN HER LEFT ARM: DOSAGE FORM: INJECTABLE
     Route: 059
     Dates: start: 202212

REACTIONS (12)
  - Device dislocation [Not Recovered/Not Resolved]
  - Hypoaesthesia [Unknown]
  - Menstruation delayed [Unknown]
  - Heavy menstrual bleeding [Unknown]
  - Vomiting [Unknown]
  - Headache [Unknown]
  - Pain [Unknown]
  - Implant site pain [Unknown]
  - Dizziness [Unknown]
  - Device breakage [Not Recovered/Not Resolved]
  - Complication associated with device [Not Recovered/Not Resolved]
  - Complication of device removal [Not Recovered/Not Resolved]

NARRATIVE: CASE EVENT DATE: 20230501
